FAERS Safety Report 12876323 (Version 6)
Quarter: 2017Q4

REPORT INFORMATION
  Report Type: Spontaneous
  Country: JP (occurrence: JP)
  Receive Date: 20161024
  Receipt Date: 20171121
  Transmission Date: 20180320
  Serious: Yes (Hospitalization, Other)
  Sender: FDA-Public Use
  Company Number: JP-FERRINGPH-2016FE05601

PATIENT

DRUGS (5)
  1. MINIRINMELT [Suspect]
     Active Substance: DESMOPRESSIN ACETATE
     Dosage: 60 ?G, 1 TIME DAILY
     Route: 048
     Dates: start: 2014, end: 201512
  2. ROHYPNOL [Concomitant]
     Active Substance: FLUNITRAZEPAM
     Indication: INSOMNIA
     Route: 048
  3. MINIRINMELT [Suspect]
     Active Substance: DESMOPRESSIN ACETATE
     Indication: DIABETES INSIPIDUS
     Dosage: UNK
     Route: 048
  4. DESMOPRESSIN KYOWA [Suspect]
     Active Substance: DESMOPRESSIN
     Indication: DIABETES INSIPIDUS
     Dosage: UNK
     Route: 045
     Dates: start: 2015
  5. MINIRINMELT [Suspect]
     Active Substance: DESMOPRESSIN ACETATE
     Dosage: 60 ?G, 2 TIMES DAILY
     Route: 048

REACTIONS (42)
  - Skin haemorrhage [Unknown]
  - Blood pressure increased [Not Recovered/Not Resolved]
  - Dehydration [Recovering/Resolving]
  - Speech disorder [Unknown]
  - Oedema [Unknown]
  - Peripheral swelling [Unknown]
  - Malaise [Recovered/Resolved]
  - Loss of consciousness [Unknown]
  - Contusion [Recovered/Resolved]
  - Coma [Unknown]
  - Glycosylated haemoglobin increased [Not Recovered/Not Resolved]
  - Insomnia [Not Recovered/Not Resolved]
  - Somnolence [Unknown]
  - Water intoxication [Not Recovered/Not Resolved]
  - Presyncope [Unknown]
  - Rash [Recovering/Resolving]
  - Urticaria [Unknown]
  - Dyspnoea [Recovered/Resolved]
  - Drug effect variable [Not Recovered/Not Resolved]
  - Vomiting [Unknown]
  - Mental disorder [Unknown]
  - Polyuria [Not Recovered/Not Resolved]
  - Visual impairment [Unknown]
  - Tinnitus [Recovered/Resolved]
  - Hyperacusis [Recovered/Resolved]
  - Affect lability [Not Recovered/Not Resolved]
  - Pruritus generalised [Unknown]
  - Confusional state [Recovered/Resolved]
  - Oral discomfort [Recovered/Resolved]
  - Feeling abnormal [Recovered/Resolved]
  - Weight decreased [Not Recovered/Not Resolved]
  - Photophobia [Not Recovered/Not Resolved]
  - Headache [Unknown]
  - Blood glucose increased [Unknown]
  - Hyperaesthesia [Unknown]
  - Nausea [Unknown]
  - Thirst [Not Recovered/Not Resolved]
  - Constipation [Unknown]
  - Dizziness [Unknown]
  - Lethargy [Unknown]
  - Salivary hypersecretion [Recovered/Resolved]
  - Hyponatraemia [Recovered/Resolved]

NARRATIVE: CASE EVENT DATE: 201512
